FAERS Safety Report 9904712 (Version 2)
Quarter: 2014Q1

REPORT INFORMATION
  Report Type: Spontaneous
  Country: NL (occurrence: NL)
  Receive Date: 20140218
  Receipt Date: 20140326
  Transmission Date: 20141002
  Serious: Yes (Hospitalization)
  Sender: FDA-Public Use
  Company Number: NL-JNJFOC-20140206017

PATIENT
  Age: 17 Year
  Sex: Female

DRUGS (1)
  1. HALOPERIDOL [Suspect]
     Indication: AGITATION
     Dosage: 3 DOSAGE FORMS
     Route: 065

REACTIONS (1)
  - Parkinsonism [Unknown]
